FAERS Safety Report 11873695 (Version 3)
Quarter: 2016Q1

REPORT INFORMATION
  Report Type: Report from Study
  Country: CA (occurrence: CA)
  Receive Date: 20151228
  Receipt Date: 20160202
  Transmission Date: 20160526
  Serious: Yes (Other)
  Sender: FDA-Public Use
  Company Number: PHHY2015CA136438

PATIENT
  Age: 66 Year
  Sex: Female

DRUGS (1)
  1. NEORAL [Suspect]
     Active Substance: CYCLOSPORINE
     Indication: PSORIASIS
     Dosage: 100 MG, QD
     Route: 048
     Dates: start: 2000, end: 201508

REACTIONS (7)
  - Psoriasis [Unknown]
  - Drug intolerance [Unknown]
  - Cough [Unknown]
  - Nasopharyngitis [Unknown]
  - Malaise [Unknown]
  - Neoplasm malignant [Unknown]
  - Drug ineffective [Unknown]

NARRATIVE: CASE EVENT DATE: 2015
